FAERS Safety Report 5252335-0 (Version None)
Quarter: 2007Q1

REPORT INFORMATION
  Report Type: 
  Country: None (occurrence: None)
  Receive Date: 20070301
  Receipt Date: 20060530
  Transmission Date: 20070707
  Serious: No
  Sender: FDA-Public Use
  Company Number: US-BRISTOL-MYERS SQUIBB COMPANY-13394275

PATIENT
  Age: 64 Year
  Sex: Female
  Weight: 77 kg

DRUGS (11)
  1. TAXOL [Suspect]
     Indication: OVARIAN CANCER
     Route: 042
     Dates: start: 20060525, end: 20060525
  2. PRANDIN [Concomitant]
  3. SYNTHROID [Concomitant]
  4. COZAAR [Concomitant]
  5. SLO-MAG [Concomitant]
  6. LOMOTIL [Concomitant]
  7. LEXAPRO [Concomitant]
  8. ZOFRAN [Concomitant]
  9. ATIVAN [Concomitant]
  10. POTASSIUM ACETATE [Concomitant]
  11. OS-CAL [Concomitant]

REACTIONS (3)
  - ERYTHEMA [None]
  - NAIL DISORDER [None]
  - SKIN DISORDER [None]
